FAERS Safety Report 16436281 (Version 1)
Quarter: 2019Q2

REPORT INFORMATION
  Report Type: Spontaneous
  Country: US (occurrence: US)
  Receive Date: 20190614
  Receipt Date: 20190614
  Transmission Date: 20190711
  Serious: No
  Sender: FDA-Public Use
  Company Number: US-JNJFOC-20190515655

PATIENT
  Sex: Male

DRUGS (3)
  1. BELSOMRA [Concomitant]
     Active Substance: SUVOREXANT
     Route: 065
  2. HYDROMORPHONE HCL [Suspect]
     Active Substance: HYDROMORPHONE HYDROCHLORIDE
     Indication: PAIN
     Route: 048
  3. CLONAZEPAM. [Concomitant]
     Active Substance: CLONAZEPAM
     Route: 065

REACTIONS (4)
  - Mydriasis [Unknown]
  - Paraesthesia [Unknown]
  - Dry mouth [Unknown]
  - Constipation [Unknown]
